FAERS Safety Report 13117261 (Version 2)
Quarter: 2017Q1

REPORT INFORMATION
  Report Type: Spontaneous
  Country: SI (occurrence: SI)
  Receive Date: 20170116
  Receipt Date: 20170120
  Transmission Date: 20170428
  Serious: Yes (Disabling)
  Sender: FDA-Public Use
  Company Number: SI-009507513-1701SVN005932

PATIENT
  Age: 72 Year
  Sex: Male

DRUGS (5)
  1. KEYTRUDA [Suspect]
     Active Substance: PEMBROLIZUMAB
     Indication: BREAST CANCER
     Dosage: 190 MG, UNK
     Route: 042
     Dates: start: 20160922, end: 20161222
  2. EXFORGE [Concomitant]
     Active Substance: AMLODIPINE BESYLATE\VALSARTAN
  3. CONCOR [Concomitant]
     Active Substance: BISOPROLOL FUMARATE
  4. SORVASTA [Concomitant]
     Active Substance: ROSUVASTATIN CALCIUM
  5. HELEX [Concomitant]
     Active Substance: ALPRAZOLAM

REACTIONS (2)
  - Stomatitis [Not Recovered/Not Resolved]
  - Lip oedema [Not Recovered/Not Resolved]

NARRATIVE: CASE EVENT DATE: 20161124
